FAERS Safety Report 16520077 (Version 1)
Quarter: 2019Q3

REPORT INFORMATION
  Report Type: Spontaneous
  Country: JP (occurrence: JP)
  Receive Date: 20190702
  Receipt Date: 20190702
  Transmission Date: 20191004
  Serious: Yes (Other)
  Sender: FDA-Public Use
  Company Number: JP-PFIZER INC-2019281997

PATIENT
  Age: 67 Year
  Sex: Male

DRUGS (1)
  1. MEROPEN [Suspect]
     Active Substance: MEROPENEM
     Dosage: UNK

REACTIONS (9)
  - Aspartate aminotransferase increased [Unknown]
  - Pyrexia [Unknown]
  - White blood cell count decreased [Unknown]
  - Clostridium difficile colitis [Unknown]
  - Candida infection [Unknown]
  - Alanine aminotransferase increased [Unknown]
  - Diarrhoea [Unknown]
  - Tongue coated [Unknown]
  - Agranulocytosis [Unknown]
